FAERS Safety Report 6527943-7 (Version None)
Quarter: 2010Q1

REPORT INFORMATION
  Report Type: 
  Country: None (occurrence: None)
  Receive Date: 20100106
  Receipt Date: 20091228
  Transmission Date: 20100710
  Serious: Yes (Hospitalization)
  Sender: FDA-Public Use
  Company Number: ES-SANOFI-AVENTIS-2009SA011602

PATIENT
  Age: 64 Year
  Sex: Female

DRUGS (2)
  1. LEFLUNOMIDE [Suspect]
     Indication: RHEUMATOID ARTHRITIS
  2. ADALIMUMAB [Suspect]
     Indication: RHEUMATOID ARTHRITIS

REACTIONS (2)
  - DYSPNOEA [None]
  - PLEURAL EFFUSION [None]
